FAERS Safety Report 9577687 (Version 1)
Quarter: 2013Q4

REPORT INFORMATION
  Report Type: Spontaneous
  Country: US (occurrence: US)
  Receive Date: 20131001
  Receipt Date: 20131001
  Transmission Date: 20140711
  Serious: No
  Sender: FDA-Public Use
  Company Number: US-AMGEN-USASP2013009258

PATIENT
  Age: 48 Year
  Sex: Male
  Weight: 104 kg

DRUGS (7)
  1. ENBREL [Suspect]
     Indication: PRODUCT USED FOR UNKNOWN INDICATION
     Dosage: 50 MG, 2 TIMES/WK
     Route: 058
  2. ZOCOR [Concomitant]
     Dosage: 10 MG, UNK
  3. EFFEXOR XR [Concomitant]
     Dosage: 75 MG, UNK
  4. LAMICTAL [Concomitant]
     Dosage: 2 MG, UNK
  5. PREVACID [Concomitant]
     Dosage: 30 MG, UNK
  6. VITAMIN D                          /00107901/ [Concomitant]
     Dosage: 1000 UNIT, UNK
  7. MULTIVITAMINS, PLAIN [Concomitant]
     Dosage: UNK

REACTIONS (1)
  - Drug effect incomplete [Unknown]
